FAERS Safety Report 6642886-6 (Version None)
Quarter: 2010Q1

REPORT INFORMATION
  Report Type: 
  Country: None (occurrence: None)
  Receive Date: 20100319
  Receipt Date: 20100308
  Transmission Date: 20100710
  Serious: Yes (Other)
  Sender: FDA-Public Use
  Company Number: US-ELI_LILLY_AND_COMPANY-US200912000582

PATIENT
  Sex: Female

DRUGS (16)
  1. FORTEO [Suspect]
     Indication: OSTEOPOROSIS
     Dosage: 20 UG, DAILY (1/D)
     Dates: start: 20090401
  2. FORTEO [Suspect]
     Dosage: 20 UG, DAILY (1/D)
  3. CALCIUM [Concomitant]
     Dates: end: 20090701
  4. FUROSEMIDE [Concomitant]
     Dosage: 40 MG, UNK
  5. ADVAIR DISKUS 100/50 [Concomitant]
     Dosage: 250 MG, 2/D
  6. ZOCOR [Concomitant]
     Dosage: 10 MG, DAILY (1/D)
  7. SINGULAIR [Concomitant]
     Dosage: 10 MG, DAILY (1/D)
  8. POTASSIUM [Concomitant]
     Dosage: 10 MEQ, 3/D
  9. VASOTEC [Concomitant]
     Dosage: 5 MG, DAILY (1/D)
  10. PROTONIX /01263201/ [Concomitant]
     Dosage: 40 MG, DAILY (1/D)
  11. ALLEGRA [Concomitant]
     Dosage: 60 MG, DAILY (1/D)
  12. FLONASE [Concomitant]
     Dosage: UNK, EACH MORNING
     Route: 045
  13. ASTELIN [Concomitant]
     Dosage: 1 PUFF, EACH EVENING
     Route: 045
  14. CENTRUM SILVER /01292501/ [Concomitant]
  15. PATADAY [Concomitant]
     Dosage: UNK, AS NEEDED
     Route: 047
  16. PREDNISONE /00044701/ [Concomitant]
     Dosage: 1 DROP, 3/D
     Route: 047

REACTIONS (16)
  - ARTHRALGIA [None]
  - ASTHENIA [None]
  - ASTHMA [None]
  - CARDIAC DISORDER [None]
  - CORNEAL DEGENERATION [None]
  - DYSSTASIA [None]
  - FATIGUE [None]
  - GLAUCOMA [None]
  - INJECTION SITE HAEMATOMA [None]
  - JOINT SWELLING [None]
  - MUSCLE SPASMS [None]
  - PAIN IN EXTREMITY [None]
  - PAIN IN JAW [None]
  - SLEEP DISORDER [None]
  - SUDDEN ONSET OF SLEEP [None]
  - VISUAL IMPAIRMENT [None]
